FAERS Safety Report 24141528 (Version 1)
Quarter: 2024Q3

REPORT INFORMATION
  Report Type: Spontaneous
  Country: DE (occurrence: DE)
  Receive Date: 20240726
  Receipt Date: 20240726
  Transmission Date: 20241016
  Serious: Yes (Other)
  Sender: RANBAXY
  Company Number: DE-SUN PHARMACEUTICAL INDUSTRIES LTD-2024RR-458991

PATIENT
  Age: 22 Year
  Sex: Female

DRUGS (3)
  1. OLANZAPINE [Suspect]
     Active Substance: OLANZAPINE
     Indication: Schizophrenia
     Dosage: 20 MILLIGRAM, DAILY
     Route: 048
     Dates: start: 20240218, end: 20240220
  2. OLANZAPINE [Suspect]
     Active Substance: OLANZAPINE
     Dosage: 10 MILLIGRAM, DAILY
     Route: 048
     Dates: start: 20240216, end: 20240217
  3. QUETIAPINE [Suspect]
     Active Substance: QUETIAPINE
     Indication: Schizophrenia
     Dosage: 75 MILLIGRAM, DAILY
     Route: 048
     Dates: start: 20240218, end: 20240220

REACTIONS (1)
  - Rhabdomyolysis [Recovered/Resolved]
